FAERS Safety Report 9639656 (Version 3)
Quarter: 2014Q1

REPORT INFORMATION
  Report Type: Spontaneous
  Country: FR (occurrence: FR)
  Receive Date: 20131023
  Receipt Date: 20140221
  Transmission Date: 20141002
  Serious: Yes (Hospitalization)
  Sender: FDA-Public Use
  Company Number: FR-ROCHE-1292457

PATIENT
  Age: 62 Year
  Sex: Male

DRUGS (14)
  1. AVASTIN [Suspect]
     Indication: RECTAL CANCER METASTATIC
     Route: 042
     Dates: start: 20130116
  2. AVASTIN [Suspect]
     Dosage: 25 MG/ML; SINGLE DOSE
     Route: 042
     Dates: start: 20130809
  3. FLUOROURACIL [Suspect]
     Indication: RECTAL CANCER METASTATIC
     Dosage: RECIEVED 4 CYCLES
     Route: 042
     Dates: start: 20120712, end: 20120823
  4. FLUOROURACIL [Suspect]
     Route: 042
     Dates: start: 20130809
  5. FLUOROURACIL [Suspect]
     Route: 042
     Dates: start: 20130809, end: 20130811
  6. CALCIUM LEVOFOLINATE [Suspect]
     Indication: RECTAL CANCER METASTATIC
     Dosage: SINGLE DOSE
     Route: 042
     Dates: start: 20130809
  7. OXALIPLATIN [Concomitant]
     Dosage: RECIEVED 4 CYCLES
     Route: 042
     Dates: start: 20120712, end: 20120823
  8. OXALIPLATIN [Concomitant]
     Dosage: FOLFOX 6 CYCLES
     Route: 042
     Dates: start: 20130116, end: 20130809
  9. OXALIPLATIN [Concomitant]
     Route: 042
     Dates: start: 20130809
  10. ZOPHREN [Concomitant]
     Dosage: 8 MG/4 ML; SINGLE DOSE
     Route: 042
     Dates: start: 20130809
  11. METHYLPREDNISOLONE [Concomitant]
     Dosage: SINGLE DOSE
     Route: 042
     Dates: start: 20130809
  12. GLUCOPHAGE [Concomitant]
  13. ACTRAPID [Concomitant]
  14. INNOHEP [Concomitant]

REACTIONS (1)
  - Cerebellar syndrome [Recovered/Resolved]
